FAERS Safety Report 11625720 (Version 3)
Quarter: 2016Q1

REPORT INFORMATION
  Report Type: Spontaneous
  Country: US (occurrence: US)
  Receive Date: 20151013
  Receipt Date: 20160105
  Transmission Date: 20160525
  Serious: Yes (Other)
  Sender: FDA-Public Use
  Company Number: US-PFIZER INC-2015343130

PATIENT
  Age: 54 Year
  Sex: Female
  Weight: 104 kg

DRUGS (7)
  1. LIPITOR [Suspect]
     Active Substance: ATORVASTATIN CALCIUM
     Indication: BLOOD CHOLESTEROL INCREASED
     Dosage: 40 MG, DAILY (PER DAY)
     Route: 048
     Dates: start: 2009
  2. NEORAL [Concomitant]
     Active Substance: CYCLOSPORINE
     Indication: RENAL TRANSPLANT
     Dosage: 25 MG, 1X/DAY (ONE TIME DAILY)
     Dates: start: 2005
  3. NEORAL [Concomitant]
     Active Substance: CYCLOSPORINE
     Dosage: 100 MG, 2X/DAY (TWO TIMES DAILY)
     Dates: start: 2005
  4. CELLCEPT [Concomitant]
     Active Substance: MYCOPHENOLATE MOFETIL\MYCOPHENOLATE MOFETIL HYDROCHLORIDE
     Indication: RENAL TRANSPLANT
     Dosage: 100 MG, 2X/DAY (TWO TIMES DAILY)
     Dates: start: 2005
  5. PREVACID [Concomitant]
     Active Substance: LANSOPRAZOLE
     Indication: GASTROINTESTINAL DISORDER
     Dosage: UNK, 2X/DAY (500 (UNKNOWN UNITS 2 TIMES A DAY)
     Dates: start: 2005
  6. LIPITOR [Suspect]
     Active Substance: ATORVASTATIN CALCIUM
     Indication: CARDIAC FAILURE
  7. LIPITOR [Suspect]
     Active Substance: ATORVASTATIN CALCIUM
     Indication: CARDIAC DISORDER

REACTIONS (1)
  - Type 2 diabetes mellitus [Not Recovered/Not Resolved]

NARRATIVE: CASE EVENT DATE: 2010
